FAERS Safety Report 4669972-4 (Version None)
Quarter: 2005Q2

REPORT INFORMATION
  Report Type: 
  Country: None (occurrence: None)
  Receive Date: 20050523
  Receipt Date: 20050512
  Transmission Date: 20051028
  Serious: Yes (Death)
  Sender: FDA-Public Use
  Company Number: 2005-05-0802

PATIENT
  Sex: Male

DRUGS (2)
  1. RIBAVIRIN [Suspect]
     Dates: start: 19970101, end: 20010130
  2. INTERFERON INJECTABLE [Suspect]
     Dosage: TIN
     Dates: start: 19970101, end: 20010130

REACTIONS (3)
  - CONGENITAL ANOMALY [None]
  - PREGNANCY OF PARTNER [None]
  - TRANSMISSION OF DRUG VIA SEMEN [None]
